FAERS Safety Report 10013166 (Version 1)
Quarter: 2014Q1

REPORT INFORMATION
  Report Type: Spontaneous
  Country: US (occurrence: US)
  Receive Date: 20140314
  Receipt Date: 20140314
  Transmission Date: 20141002
  Serious: Yes (Death, Hospitalization)
  Sender: FDA-Public Use
  Company Number: US-BAXTER-2014BAX012269

PATIENT
  Sex: Female

DRUGS (4)
  1. DIANEAL PD2 [Suspect]
     Indication: PERITONEAL DIALYSIS
     Route: 033
     Dates: start: 20130318, end: 20140309
  2. DIANEAL PD2 [Suspect]
     Indication: RENAL FAILURE CHRONIC
  3. DIANEAL PD2 [Suspect]
     Indication: PERITONEAL DIALYSIS
     Route: 033
     Dates: start: 20130318, end: 20140309
  4. DIANEAL PD2 [Suspect]
     Indication: RENAL FAILURE CHRONIC

REACTIONS (2)
  - Sepsis [Fatal]
  - Diabetic gangrene [Unknown]
